FAERS Safety Report 5251586-9 (Version None)
Quarter: 2007Q1

REPORT INFORMATION
  Report Type: 
  Country: None (occurrence: None)
  Receive Date: 20070228
  Receipt Date: 20061003
  Transmission Date: 20070707
  Serious: No
  Sender: FDA-Public Use
  Company Number: US-GLAXOSMITHKLINE-A0620978A

PATIENT
  Age: 52 Year
  Sex: Female

DRUGS (5)
  1. LAMICTAL [Suspect]
     Indication: BIPOLAR DISORDER
     Dosage: 100MG TWICE PER DAY
     Route: 048
     Dates: start: 20050118
  2. CYMBALTA [Concomitant]
     Dates: end: 20060816
  3. EFFEXOR XR [Concomitant]
     Dates: start: 20060816
  4. WELLBUTRIN XL [Concomitant]
     Dates: start: 20050928, end: 20060625
  5. SEROQUEL [Concomitant]
     Dates: start: 20060620

REACTIONS (2)
  - DYSARTHRIA [None]
  - HYPOAESTHESIA ORAL [None]
